FAERS Safety Report 11362799 (Version 1)
Quarter: 2015Q3

REPORT INFORMATION
  Report Type: Spontaneous
  Country: US (occurrence: None)
  Receive Date: 20150807
  Receipt Date: 20150807
  Transmission Date: 20151125
  Serious: Yes (Life-Threatening, Hospitalization, Disabling, Other)
  Sender: FDA-Public Use
  Company Number: None

PATIENT
  Age: 48 Year
  Sex: Male
  Weight: 104 kg

DRUGS (1)
  1. APIXIBAN [Suspect]
     Active Substance: APIXABAN
     Indication: DEEP VEIN THROMBOSIS
     Dosage: 1 PILL
     Route: 048
     Dates: end: 20150803

REACTIONS (5)
  - Basilar artery occlusion [None]
  - Paradoxical embolism [None]
  - Cerebrovascular accident [None]
  - Deep vein thrombosis [None]
  - Hypercoagulation [None]

NARRATIVE: CASE EVENT DATE: 20150805
